FAERS Safety Report 6862493-X (Version None)
Quarter: 2010Q3

REPORT INFORMATION
  Report Type: 
  Country: None (occurrence: None)
  Receive Date: 20100716
  Receipt Date: 20100603
  Transmission Date: 20110219
  Serious: Yes (Hospitalization)
  Sender: FDA-Public Use
  Company Number: BVT-000500

PATIENT
  Sex: Female

DRUGS (5)
  1. KINERET [Suspect]
     Indication: PRODUCT USED FOR UNKNOWN INDICATION
     Dosage: 100 MG QD, 100 MG QD
     Dates: start: 20100128, end: 20100208
  2. KINERET [Suspect]
     Indication: PRODUCT USED FOR UNKNOWN INDICATION
     Dosage: 100 MG QD, 100 MG QD
     Dates: start: 20100215
  3. ATACAND HCT [Concomitant]
  4. CYMBALTA [Concomitant]
  5. IBUX [Concomitant]

REACTIONS (4)
  - ERYTHEMA [None]
  - INJECTION SITE REACTION [None]
  - MALAISE [None]
  - PYREXIA [None]
